FAERS Safety Report 5482157-7 (Version None)
Quarter: 2007Q4

REPORT INFORMATION
  Report Type: 
  Country: None (occurrence: None)
  Receive Date: 20071005
  Receipt Date: 20070924
  Transmission Date: 20080405
  Serious: Yes (Hospitalization)
  Sender: FDA-Public Use
  Company Number: GXKR2007GB07281

PATIENT
  Age: 67 Year
  Sex: Male
  Weight: 87 kg

DRUGS (6)
  1. SIMVASTATIN [Suspect]
     Indication: HYPERLIPIDAEMIA
     Dosage: 40 MG, QD, ORAL
     Route: 048
     Dates: start: 20050926
  2. FOLIC ACID [Concomitant]
  3. MEBEVERINE HYDROCHLORIDE (MEBEVERINE HYDROCHLORIDE ) [Concomitant]
  4. MELOXICAM [Concomitant]
  5. METHOTREXATE [Concomitant]
  6. OMEPRAZOLE [Concomitant]

REACTIONS (1)
  - SYNCOPE [None]
